FAERS Safety Report 6273110-4 (Version None)
Quarter: 2009Q3

REPORT INFORMATION
  Report Type: 
  Country: None (occurrence: None)
  Receive Date: 20090715
  Receipt Date: 20090715
  Transmission Date: 20100115
  Serious: Yes (Disabling)
  Sender: FDA-Public Use
  Company Number: None

PATIENT
  Age: 35 Year
  Sex: Female
  Weight: 89.8122 kg

DRUGS (6)
  1. TOPAMAX [Suspect]
     Indication: HEADACHE
     Dosage: 6 DAILY ORAL
     Route: 048
     Dates: start: 20081018, end: 20081222
  2. TOPAMAX [Suspect]
     Indication: MIGRAINE
     Dosage: 6 DAILY ORAL
     Route: 048
     Dates: start: 20081018, end: 20081222
  3. COPAXONE [Concomitant]
  4. PROVIGIL [Concomitant]
  5. EFFEXOR [Concomitant]
  6. CLONAZEPAM [Concomitant]

REACTIONS (2)
  - HYPOAESTHESIA [None]
  - PARAESTHESIA [None]
